FAERS Safety Report 10064537 (Version 1)
Quarter: 2014Q2

REPORT INFORMATION
  Report Type: Spontaneous
  Country: US (occurrence: US)
  Receive Date: 20140408
  Receipt Date: 20140408
  Transmission Date: 20141212
  Serious: No
  Sender: FDA-Public Use
  Company Number: US-009507513-1404USA003479

PATIENT
  Age: 35 Year
  Sex: Female

DRUGS (2)
  1. JANUVIA [Suspect]
     Indication: TYPE 2 DIABETES MELLITUS
     Dosage: 100 MG, QD
     Route: 048
     Dates: start: 201402, end: 2014
  2. JANUVIA [Suspect]
     Dosage: 50 MG, BID
     Route: 048
     Dates: start: 2014

REACTIONS (1)
  - Hypoglycaemia [Recovered/Resolved]
